FAERS Safety Report 13217626 (Version 2)
Quarter: 2018Q1

REPORT INFORMATION
  Report Type: Other
  Country: US (occurrence: US)
  Receive Date: 20170210
  Receipt Date: 20180130
  Transmission Date: 20180508
  Serious: No
  Sender: FDA-Public Use
  Company Number: US-ACORDA-ACO_124615_2016

PATIENT
  Age: 36 Year
  Sex: Female
  Weight: 73.15 kg

DRUGS (9)
  1. BACLOFEN. [Concomitant]
     Active Substance: BACLOFEN
     Indication: PRODUCT USED FOR UNKNOWN INDICATION
     Dosage: 10 MG, BID
     Route: 048
  2. SOLU-MEDROL [Concomitant]
     Active Substance: METHYLPREDNISOLONE SODIUM SUCCINATE
     Indication: MULTIPLE SCLEROSIS
     Dosage: 1000 MG, QD INFUSE OVER 1.5 TO 2 HOURS AS TOLERATED
     Route: 042
  3. AMPYRA [Suspect]
     Active Substance: DALFAMPRIDINE
     Indication: GAIT DISTURBANCE
     Dosage: 10 MG, Q 12 HRS
     Route: 048
     Dates: start: 201601, end: 20160602
  4. DULOXETINE. [Concomitant]
     Active Substance: DULOXETINE
     Indication: PRODUCT USED FOR UNKNOWN INDICATION
     Dosage: 90 MG, UNK
     Route: 065
  5. VERAPAMIL [Concomitant]
     Active Substance: VERAPAMIL HYDROCHLORIDE
     Indication: PRODUCT USED FOR UNKNOWN INDICATION
     Dosage: 120 MG, UNK
     Route: 065
  6. TIZANIDINE. [Suspect]
     Active Substance: TIZANIDINE
     Indication: PRODUCT USED FOR UNKNOWN INDICATION
     Dosage: START 1/2 TAB BID
     Route: 048
  7. TYSABRI [Concomitant]
     Active Substance: NATALIZUMAB
     Indication: PRODUCT USED FOR UNKNOWN INDICATION
     Dosage: 300 MG/15 ML, MONTHLY
     Route: 042
  8. TIZANIDINE. [Suspect]
     Active Substance: TIZANIDINE
     Dosage: 4 MG, BID
     Route: 048
  9. VITAMIN D3 [Concomitant]
     Active Substance: CHOLECALCIFEROL
     Indication: PRODUCT USED FOR UNKNOWN INDICATION
     Dosage: 2000 TO 4000 IU, QD
     Route: 065

REACTIONS (30)
  - Neuralgia [Not Recovered/Not Resolved]
  - Pain [Unknown]
  - Depression [Recovering/Resolving]
  - Muscle spasms [Unknown]
  - Hypoaesthesia [Unknown]
  - JC polyomavirus test positive [Not Recovered/Not Resolved]
  - Muscle fatigue [Recovered/Resolved]
  - Dysarthria [Unknown]
  - Therapeutic response unexpected [Recovered/Resolved]
  - Peripheral swelling [Recovering/Resolving]
  - Migraine [Not Recovered/Not Resolved]
  - Dry eye [Not Recovered/Not Resolved]
  - Hypertension [Not Recovered/Not Resolved]
  - Arthralgia [Unknown]
  - Dysphagia [Recovering/Resolving]
  - Sexual dysfunction [Unknown]
  - Muscular weakness [Unknown]
  - Nasopharyngitis [Recovered/Resolved]
  - Dizziness [Unknown]
  - Tinnitus [Recovered/Resolved]
  - Weight decreased [Not Recovered/Not Resolved]
  - Defaecation urgency [Recovering/Resolving]
  - Memory impairment [Unknown]
  - Vision blurred [Unknown]
  - Gait disturbance [Recovered/Resolved]
  - Fatigue [Unknown]
  - Multiple sclerosis relapse [Recovered/Resolved]
  - Pollakiuria [Recovered/Resolved]
  - Night sweats [Unknown]
  - Temperature intolerance [Unknown]

NARRATIVE: CASE EVENT DATE: 201602
